FAERS Safety Report 7438823-7 (Version None)
Quarter: 2011Q2

REPORT INFORMATION
  Report Type: 
  Country: None (occurrence: None)
  Receive Date: 20110426
  Receipt Date: 20110418
  Transmission Date: 20111010
  Serious: Yes (Other)
  Sender: FDA-Public Use
  Company Number: US-SANOFI-AVENTIS-2011SA024383

PATIENT
  Age: 55 Year
  Sex: Female

DRUGS (3)
  1. BYETTA [Suspect]
     Route: 065
  2. LANTUS [Suspect]
     Indication: TYPE 2 DIABETES MELLITUS
     Dosage: DOSE:76 UNIT(S)
     Route: 058
  3. OPTICLICK [Suspect]
     Indication: TYPE 2 DIABETES MELLITUS

REACTIONS (2)
  - SKIN CANCER [None]
  - URTICARIA [None]
